FAERS Safety Report 7747624-1 (Version None)
Quarter: 2011Q3

REPORT INFORMATION
  Report Type: 
  Country: None (occurrence: None)
  Receive Date: 20110913
  Receipt Date: 20110902
  Transmission Date: 20111222
  Serious: Yes (Other)
  Sender: FDA-Public Use
  Company Number: US-BAYER-2011-039152

PATIENT
  Age: 52 Year
  Sex: Female
  Weight: 72.562 kg

DRUGS (3)
  1. AVELOX [Suspect]
     Indication: UPPER RESPIRATORY TRACT INFECTION
     Dosage: 400 MG, ONCE
     Route: 048
     Dates: start: 20110401, end: 20110401
  2. AMITRIPTYLINE HCL [Concomitant]
     Dosage: 100 MG, CONT
  3. PROVIGIL [Concomitant]
     Dosage: 200 MG, CONT

REACTIONS (6)
  - ERYTHEMA [None]
  - ANAPHYLACTIC REACTION [None]
  - SWOLLEN TONGUE [None]
  - OEDEMA PERIPHERAL [None]
  - PRURITUS [None]
  - PHARYNGEAL OEDEMA [None]
